FAERS Safety Report 8784761 (Version 2)
Quarter: 2012Q4

REPORT INFORMATION
  Report Type: Spontaneous
  Country: US (occurrence: None)
  Receive Date: 20120831
  Receipt Date: 20121123
  Transmission Date: 20130627
  Serious: Yes (Hospitalization)
  Sender: FDA-Public Use
  Company Number: CRC-12-412

PATIENT
  Sex: Male

DRUGS (2)
  1. METOPROLOL TARTRATE [Suspect]
     Indication: BLOOD PRESSURE HIGH
     Route: 048
     Dates: start: 201208
  2. METOPROLOL TARTRATE [Suspect]
     Indication: BLOOD PRESSURE HIGH
     Dosage: 1  1/2 TAB DAILY; ORALLY
     Route: 048
     Dates: start: 20120727, end: 201208

REACTIONS (2)
  - Blood pressure decreased [None]
  - Product substitution issue [None]
